FAERS Safety Report 5511749-1 (Version None)
Quarter: 2007Q4

REPORT INFORMATION
  Report Type: 
  Country: None (occurrence: None)
  Receive Date: 20071109
  Receipt Date: 20071030
  Transmission Date: 20080405
  Serious: Yes (Hospitalization, Other)
  Sender: FDA-Public Use
  Company Number: JP-PFIZER INC-2007082725

PATIENT
  Sex: Female
  Weight: 51 kg

DRUGS (10)
  1. VFEND [Suspect]
     Indication: MENINGITIS CRYPTOCOCCAL
     Route: 048
     Dates: start: 20070922, end: 20070927
  2. VFEND [Suspect]
     Dosage: DAILY DOSE:400MG
     Route: 048
     Dates: start: 20070928, end: 20071022
  3. RHEUMATREX [Concomitant]
     Indication: RHEUMATOID ARTHRITIS
     Route: 048
  4. IMURAN [Concomitant]
     Indication: RHEUMATOID ARTHRITIS
     Route: 048
     Dates: end: 20070829
  5. MOBIC [Concomitant]
     Indication: RHEUMATOID ARTHRITIS
     Route: 048
  6. TAKEPRON [Concomitant]
     Indication: RHEUMATOID ARTHRITIS
     Route: 048
  7. METHOTREXATE [Concomitant]
     Indication: RHEUMATOID ARTHRITIS
     Route: 048
  8. PREDNISOLONE [Concomitant]
     Indication: RHEUMATOID ARTHRITIS
     Route: 048
  9. AMBISOME [Concomitant]
     Route: 042
  10. ANCOTIL [Concomitant]
     Route: 048

REACTIONS (3)
  - EYELID PTOSIS [None]
  - HEPATIC FUNCTION ABNORMAL [None]
  - RASH [None]
